FAERS Safety Report 17535444 (Version 1)
Quarter: 2020Q1

REPORT INFORMATION
  Report Type: Spontaneous
  Country: BR (occurrence: BR)
  Receive Date: 20200312
  Receipt Date: 20200312
  Transmission Date: 20200409
  Serious: Yes (Other)
  Sender: FDA-Public Use
  Company Number: BR-009507513-2003BRA002479

PATIENT
  Age: 51 Year
  Sex: Female
  Weight: 79 kg

DRUGS (4)
  1. STEZZA [Suspect]
     Active Substance: ESTRADIOL\NOMEGESTROL ACETATE
     Indication: CONTRACEPTION
  2. AMLODIPINE [Concomitant]
     Active Substance: AMLODIPINE BESYLATE
     Indication: HYPERTENSION
     Dosage: 1 TABLET DAILY
     Route: 048
     Dates: start: 2002
  3. LOSARTAN POTASSIUM. [Suspect]
     Active Substance: LOSARTAN POTASSIUM
     Indication: HYPERTENSION
     Dosage: ONE TABLET BY THE MONRING AND ONE TABLET AT NIGHT
     Route: 048
     Dates: start: 2002
  4. STEZZA [Suspect]
     Active Substance: ESTRADIOL\NOMEGESTROL ACETATE
     Indication: VAGINAL HAEMORRHAGE
     Dosage: 1 TABLET DAILY (24 ACTIVE TABLETS, 4 PLACEBO).
     Route: 048
     Dates: start: 2014

REACTIONS (4)
  - Drug ineffective [Unknown]
  - Abnormal withdrawal bleeding [Unknown]
  - Diabetes mellitus [Unknown]
  - Diabetes mellitus inadequate control [Unknown]

NARRATIVE: CASE EVENT DATE: 2018
